FAERS Safety Report 4309724-8 (Version None)
Quarter: 2004Q1

REPORT INFORMATION
  Report Type: 
  Country: None (occurrence: None)
  Receive Date: 20040301
  Receipt Date: 20040216
  Transmission Date: 20041129
  Serious: Yes (Hospitalization, Disabling)
  Sender: FDA-Public Use
  Company Number: 2004010866

PATIENT
  Age: 48 Year
  Sex: Female
  Weight: 76 kg

DRUGS (10)
  1. SORTIS (ATORVASTATIN) [Suspect]
     Indication: HYPERLIPIDAEMIA
     Dosage: 40 MG (DAILY), ORAL
     Route: 048
     Dates: start: 20040101, end: 20040122
  2. CYCLOSPORINE [Suspect]
     Indication: RENAL TRANSPLANT
     Dosage: 100 MG (UNKNOWN), ORAL
     Route: 048
  3. FELODIPINE [Suspect]
     Indication: HYPERTENSION
     Dosage: 5 MG (DAILY), ORAL YEARS
     Route: 048
  4. PREDNISONE [Concomitant]
  5. MYCOPHENOLATE MOFETIL (MYCOPHENOLATE) [Concomitant]
  6. TORASEMIDE (METOPROLOL) [Concomitant]
  7. METOPROLOL (METOPROLOL) [Concomitant]
  8. CETIRIZINE HCL [Concomitant]
  9. DARBEPOETIN ALFA (DARBEPOETIN ALFA) [Concomitant]
  10. CALCIUM ACETATE (CALCIUM ACETATE) [Concomitant]

REACTIONS (6)
  - AZOTAEMIA [None]
  - GENERAL PHYSICAL HEALTH DETERIORATION [None]
  - HYPERKALAEMIA [None]
  - PRURITUS [None]
  - RENAL FAILURE [None]
  - RHABDOMYOLYSIS [None]
